FAERS Safety Report 5974858-9 (Version None)
Quarter: 2008Q4

REPORT INFORMATION
  Report Type: 
  Country: None (occurrence: None)
  Receive Date: 20081202
  Receipt Date: 20081119
  Transmission Date: 20090506
  Serious: Yes (Other)
  Sender: FDA-Public Use
  Company Number: FR-PFIZER INC-2008098555

PATIENT
  Sex: Male

DRUGS (12)
  1. LYRICA [Suspect]
     Route: 048
     Dates: start: 20080416
  2. BACLOFEN [Suspect]
     Route: 048
     Dates: start: 20080417, end: 20080418
  3. TRAMADOL HCL [Suspect]
     Route: 048
     Dates: start: 20080301, end: 20080416
  4. TRAMADOL HCL [Suspect]
     Route: 042
     Dates: start: 20080416, end: 20080418
  5. TIENAM [Suspect]
     Indication: OSTEITIS
     Route: 042
     Dates: start: 20080318, end: 20080418
  6. AERIUS [Concomitant]
     Dosage: DAILY DOSE:5MG
  7. FONZYLANE [Concomitant]
     Dosage: DAILY DOSE:300MG
  8. CORDARONE [Concomitant]
     Dosage: DAILY DOSE:200MG
  9. CRESTOR [Concomitant]
     Dosage: DAILY DOSE:5MG
  10. INIPOMP [Concomitant]
     Dosage: DAILY DOSE:20MG
  11. TRIVASTAL [Concomitant]
     Dosage: DAILY DOSE:50MG
  12. SPASFON-LYOC [Concomitant]
     Dates: end: 20080424

REACTIONS (1)
  - CONFUSIONAL STATE [None]
